FAERS Safety Report 5056951-0 (Version None)
Quarter: 2006Q3

REPORT INFORMATION
  Report Type: 
  Country: None (occurrence: None)
  Receive Date: 20060717
  Receipt Date: 20060717
  Transmission Date: 20061208
  Serious: Yes (Other)
  Sender: FDA-Public Use
  Company Number: None

PATIENT
  Sex: Female

DRUGS (1)
  1. NEVANAC [Suspect]
     Indication: PAIN PROPHYLAXIS
     Dosage: ONE DROP TID RIGHT EYE
     Dates: start: 20051214, end: 20051221

REACTIONS (3)
  - CORNEAL OPACITY [None]
  - EYE DISORDER [None]
  - POST PROCEDURAL COMPLICATION [None]
